FAERS Safety Report 13947055 (Version 4)
Quarter: 2018Q3

REPORT INFORMATION
  Report Type: Spontaneous
  Country: US (occurrence: US)
  Receive Date: 20170907
  Receipt Date: 20180917
  Transmission Date: 20181010
  Serious: Yes (Hospitalization, Other)
  Sender: FDA-Public Use
  Company Number: US-DSJP-DSU-2017-135749

PATIENT

DRUGS (4)
  1. BENICAR [Suspect]
     Active Substance: OLMESARTAN MEDOXOMIL
     Indication: PRODUCT USED FOR UNKNOWN INDICATION
     Dosage: 20 MG, BID
     Route: 048
     Dates: start: 20111113, end: 20171002
  2. BENICAR [Suspect]
     Active Substance: OLMESARTAN MEDOXOMIL
     Dosage: 40 MG, QD
     Route: 048
     Dates: start: 20111113, end: 20171005
  3. BENICAR [Suspect]
     Active Substance: OLMESARTAN MEDOXOMIL
     Dosage: 5 MG, QD
  4. BENICAR [Suspect]
     Active Substance: OLMESARTAN MEDOXOMIL
     Dosage: 40 MG, 0.5 TABLET, BID

REACTIONS (9)
  - Weight decreased [Recovered/Resolved]
  - Small intestinal obstruction [Unknown]
  - Gastrooesophageal reflux disease [Not Recovered/Not Resolved]
  - Duodenitis [Unknown]
  - Ulcerative gastritis [Recovering/Resolving]
  - Drug administration error [Unknown]
  - Cholecystitis chronic [Recovered/Resolved]
  - Hiatus hernia [Unknown]
  - Gastroenteritis [Recovered/Resolved]

NARRATIVE: CASE EVENT DATE: 20120320
